FAERS Safety Report 4910481-2 (Version None)
Quarter: 2006Q1

REPORT INFORMATION
  Report Type: 
  Country: None (occurrence: None)
  Receive Date: 20060209
  Receipt Date: 20060125
  Transmission Date: 20060701
  Serious: Yes (Hospitalization)
  Sender: FDA-Public Use
  Company Number: 200610402GDS

PATIENT
  Age: 70 Year
  Sex: Male

DRUGS (5)
  1. NIFEDIPINE [Suspect]
     Indication: HYPERTENSION
     Dosage: NI,
  2. DOXAZOSIN [Suspect]
     Indication: HYPERTENSION
     Dosage: NI
  3. BENDROFLUMETHIAZIDE [Concomitant]
  4. BECLOMETHASONE DIPROPIONATE [Concomitant]
  5. SALBUTAMOL [Concomitant]

REACTIONS (2)
  - BRADYARRHYTHMIA [None]
  - ORTHOSTATIC HYPOTENSION [None]
